FAERS Safety Report 13615586 (Version 1)
Quarter: 2017Q2

REPORT INFORMATION
  Report Type: Spontaneous
  Country: US (occurrence: US)
  Receive Date: 20170605
  Receipt Date: 20170605
  Transmission Date: 20170830
  Serious: Yes (Life-Threatening)
  Sender: FDA-Public Use
  Company Number: None

PATIENT
  Age: 85 Year
  Sex: Male
  Weight: 88.5 kg

DRUGS (2)
  1. ENOXAPARIN [Suspect]
     Active Substance: ENOXAPARIN
     Route: 058
     Dates: start: 20170216, end: 20170222
  2. WARFARIN [Suspect]
     Active Substance: WARFARIN
     Route: 048
     Dates: start: 20170217, end: 20170222

REACTIONS (4)
  - Retroperitoneal haemorrhage [None]
  - Haemorrhage [None]
  - Vomiting [None]
  - Haemoglobin decreased [None]

NARRATIVE: CASE EVENT DATE: 20170222
